FAERS Safety Report 12995914 (Version 1)
Quarter: 2016Q4

REPORT INFORMATION
  Report Type: Spontaneous
  Country: FR (occurrence: FR)
  Receive Date: 20161202
  Receipt Date: 20161202
  Transmission Date: 20170207
  Serious: Yes (Life-Threatening, Hospitalization, Other)
  Sender: FDA-Public Use
  Company Number: FR-ELI_LILLY_AND_COMPANY-FR201611009938

PATIENT
  Age: 0 Day
  Sex: Female

DRUGS (5)
  1. VALIUM [Suspect]
     Active Substance: DIAZEPAM
     Dosage: 15 MG, EACH EVENING
     Route: 064
     Dates: start: 201604
  2. ZYPREXA [Suspect]
     Active Substance: OLANZAPINE
     Indication: ANXIETY
     Dosage: 25 MG, EACH EVENING
     Route: 064
  3. BUPRENORPHINE. [Suspect]
     Active Substance: BUPRENORPHINE
     Indication: DRUG DEPENDENCE
     Dosage: 2 MG, EACH MORNING
     Route: 064
  4. BUPRENORPHINE. [Suspect]
     Active Substance: BUPRENORPHINE
     Dosage: 2 MG, EACH EVENING
     Route: 064
  5. VALIUM [Suspect]
     Active Substance: DIAZEPAM
     Indication: ANXIETY
     Dosage: 15 MG, EACH MORNING
     Route: 064

REACTIONS (5)
  - Foetal exposure during pregnancy [Recovered/Resolved]
  - Hypertonia neonatal [Unknown]
  - Drug withdrawal syndrome neonatal [Recovering/Resolving]
  - Neonatal respiratory distress syndrome [Recovered/Resolved]
  - Apgar score low [Unknown]

NARRATIVE: CASE EVENT DATE: 20161015
